FAERS Safety Report 8204535-5 (Version None)
Quarter: 2012Q1

REPORT INFORMATION
  Report Type: 
  Country: None (occurrence: None)
  Receive Date: 20120313
  Receipt Date: 20120306
  Transmission Date: 20120608
  Serious: Yes (Hospitalization, Other)
  Sender: FDA-Public Use
  Company Number: US-PFIZER INC-2012022795

PATIENT
  Sex: Female

DRUGS (17)
  1. VITAMIN D [Concomitant]
     Dosage: 400 IU, DAILY
     Route: 048
  2. LANOXIN [Concomitant]
     Dosage: 125 UG, 1X/DAY
     Route: 048
  3. PREDNISOLONE ACETATE [Concomitant]
     Dosage: UNK, DAILY
     Route: 047
  4. FERROUS SULFATE [Concomitant]
     Dosage: 1X/DAY
     Route: 048
  5. LASIX [Concomitant]
     Dosage: 20 MG, 1X/DAY
     Route: 048
  6. LANTUS [Concomitant]
     Dosage: 25 UNITS DAILY
     Route: 058
  7. VIAGRA [Concomitant]
     Dosage: 25 MG, 3X/DAY
     Route: 048
  8. REVATIO [Suspect]
     Indication: PULMONARY HYPERTENSION
     Dosage: 20 MG, 3X/DAY
     Route: 048
     Dates: start: 20110325
  9. AZOPT [Concomitant]
     Dosage: UNK, 3X/DAY
     Route: 047
  10. PREDNISONE [Concomitant]
     Dosage: 10 MG, DAILY
     Route: 048
  11. ALDACTONE [Concomitant]
     Dosage: 25 MG, 1X/DAY
     Route: 048
  12. CALCIUM CARBONATE [Concomitant]
     Dosage: 1 TABLET DAILY
     Route: 048
  13. CARDIZEM SR [Concomitant]
     Dosage: 120 MG, 1X/DAY
     Route: 048
  14. KLOR-CON [Concomitant]
     Dosage: UNK, DAILY
     Route: 048
  15. ZOCOR [Concomitant]
     Dosage: 40 MG, EVERY NIGHT AT BEDTIME
     Route: 048
  16. ALBUTEROL [Concomitant]
     Dosage: 2.5 MG EVERY 4 TO 6 HOURS AS NEEDED
  17. PRILOSEC [Concomitant]
     Dosage: 20 MG, EVERY MORNING
     Route: 048

REACTIONS (15)
  - LOSS OF CONSCIOUSNESS [None]
  - TACHYCARDIA [None]
  - HYPERCHOLESTEROLAEMIA [None]
  - MALNUTRITION [None]
  - DIABETES MELLITUS [None]
  - HYPERTENSION [None]
  - PULMONARY FIBROSIS [None]
  - PNEUMONIA [None]
  - PYREXIA [None]
  - GASTROOESOPHAGEAL REFLUX DISEASE [None]
  - DYSPNOEA [None]
  - JOINT SWELLING [None]
  - CONFUSIONAL STATE [None]
  - DEHYDRATION [None]
  - ASTHENIA [None]
